FAERS Safety Report 7544371-6 (Version None)
Quarter: 2011Q2

REPORT INFORMATION
  Report Type: 
  Country: None (occurrence: None)
  Receive Date: 20110613
  Receipt Date: 20080721
  Transmission Date: 20111010
  Serious: Yes (Other)
  Sender: FDA-Public Use
  Company Number: PHHY2008CA14447

PATIENT
  Sex: Female

DRUGS (4)
  1. CLOZAPINE [Suspect]
     Indication: SCHIZOPHRENIA
     Dosage: 200 MG (150 MG AT BEDTIME AND 50 MG AT MORNING)
     Route: 048
  2. DIANE - 35 [Concomitant]
     Dosage: 35 OT
  3. SEROQUEL [Concomitant]
     Dosage: 600 OT, QID
  4. POTASSIUM CHLORIDE [Concomitant]
     Dosage: 600 OT, BID

REACTIONS (2)
  - CATARACT [None]
  - VISUAL FIELD DEFECT [None]
